FAERS Safety Report 5734321-7 (Version None)
Quarter: 2008Q2

REPORT INFORMATION
  Report Type: 
  Country: None (occurrence: None)
  Receive Date: 20080512
  Receipt Date: 20080428
  Transmission Date: 20081010
  Serious: Yes (Disabling, Other)
  Sender: FDA-Public Use
  Company Number: GB-TEVA-170933ISR

PATIENT
  Age: 53 Year
  Sex: Male
  Weight: 80 kg

DRUGS (1)
  1. SIMVASTATIN [Suspect]
     Indication: MYOCARDIAL ISCHAEMIA
     Route: 048
     Dates: start: 20080218, end: 20080301

REACTIONS (1)
  - PSORIASIS [None]
